FAERS Safety Report 19821090 (Version 1)
Quarter: 2021Q3

REPORT INFORMATION
  Report Type: Spontaneous
  Country: US (occurrence: US)
  Receive Date: 20210913
  Receipt Date: 20210913
  Transmission Date: 20211014
  Serious: Yes (Life-Threatening, Hospitalization)
  Sender: FDA-Public Use
  Company Number: US-MYLANLABS-2021M1059920

PATIENT
  Age: 69 Year
  Sex: Male

DRUGS (1)
  1. METFORMIN [Suspect]
     Active Substance: METFORMIN HYDROCHLORIDE
     Indication: DIABETES MELLITUS
     Route: 065

REACTIONS (11)
  - Metabolic acidosis [Unknown]
  - Acute kidney injury [Recovering/Resolving]
  - Hypothermia [Unknown]
  - Hypotension [Unknown]
  - Bradycardia [Unknown]
  - Atrioventricular node dysfunction [Recovered/Resolved]
  - Intentional overdose [Recovering/Resolving]
  - Toxicity to various agents [Recovering/Resolving]
  - Unresponsive to stimuli [Unknown]
  - Lactic acidosis [Recovering/Resolving]
  - Cardiogenic shock [Unknown]
